FAERS Safety Report 16581427 (Version 5)
Quarter: 2025Q2

REPORT INFORMATION
  Report Type: Spontaneous
  Country: US (occurrence: None)
  Receive Date: 20190716
  Receipt Date: 20250506
  Transmission Date: 20250716
  Serious: Yes (Other)
  Sender: INCYTE
  Company Number: US-INCYTE CORPORATION-2019IN006996

PATIENT
  Age: 72 Year
  Weight: 82.54 kg

DRUGS (12)
  1. JAKAFI [Interacting]
     Active Substance: RUXOLITINIB
     Indication: Polycythaemia vera
     Dosage: 10 MILLIGRAM, BID
  2. JAKAFI [Interacting]
     Active Substance: RUXOLITINIB
     Dosage: 10 MILLIGRAM, BID
  3. JAKAFI [Interacting]
     Active Substance: RUXOLITINIB
     Dosage: 10 MILLIGRAM, BID
  4. JAKAFI [Interacting]
     Active Substance: RUXOLITINIB
     Dosage: 10 MILLIGRAM, BID
  5. JAKAFI [Interacting]
     Active Substance: RUXOLITINIB
     Dosage: 10 MILLIGRAM, QD
  6. JAKAFI [Interacting]
     Active Substance: RUXOLITINIB
     Dosage: 5 MILLIGRAM, BID
  7. GLUCOSAMINE + CHONDROITIN          /01430901/ [Concomitant]
     Indication: Product used for unknown indication
     Route: 065
  8. ASPIRIN [Concomitant]
     Active Substance: ASPIRIN
     Indication: Product used for unknown indication
     Route: 065
  9. HYDROXYUREA [Concomitant]
     Active Substance: HYDROXYUREA
     Indication: Product used for unknown indication
     Route: 065
  10. LISINOPRIL [Concomitant]
     Active Substance: LISINOPRIL
     Indication: Product used for unknown indication
     Route: 065
  11. NIACINAMIDE [Concomitant]
     Active Substance: NIACINAMIDE
     Indication: Product used for unknown indication
     Route: 065
  12. VITAMIN B12 [Concomitant]
     Active Substance: CYANOCOBALAMIN
     Indication: Product used for unknown indication

REACTIONS (4)
  - Neuroendocrine carcinoma of the skin [Recovered/Resolved]
  - Immunodeficiency [Unknown]
  - Metastases to oesophagus [Unknown]
  - Inhibitory drug interaction [Unknown]
